FAERS Safety Report 23705855 (Version 1)
Quarter: 2024Q2

REPORT INFORMATION
  Report Type: Spontaneous
  Country: IN (occurrence: IN)
  Receive Date: 20240404
  Receipt Date: 20240404
  Transmission Date: 20240716
  Serious: Yes (Life-Threatening, Other)
  Sender: FDA-Public Use
  Company Number: IN-AFAXYS PHARMA, LLC-2024AFX00004

PATIENT
  Age: 46 Year
  Sex: Female

DRUGS (11)
  1. LIDOCAINE [Suspect]
     Active Substance: LIDOCAINE
     Dosage: 5 ML (NASAL SEPTAL MUCOSA WAS INFILTRATED)
  2. LIDOCAINE [Suspect]
     Active Substance: LIDOCAINE
     Dosage: 120 MG, ONCE
     Route: 042
  3. EPINEPHRINE [Suspect]
     Active Substance: EPINEPHRINE
     Dosage: (NASAL SEPTAL MUCOSA WAS INFILTRATED)
  4. DESFLURANE [Suspect]
     Active Substance: DESFLURANE
     Indication: Anaesthesia
  5. XYLOMETAZOLINE [Concomitant]
     Active Substance: XYLOMETAZOLINE
     Route: 045
  6. DEXAMETHASONE [Concomitant]
     Active Substance: DEXAMETHASONE
     Dosage: 16 MG
     Route: 042
  7. SODIUM CHLORIDE [Concomitant]
     Active Substance: SODIUM CHLORIDE
     Route: 042
  8. FENTANYL [Concomitant]
     Active Substance: FENTANYL\FENTANYL CITRATE
     Dosage: 140 ?G
     Route: 042
  9. THIOPENTAL SODIUM [Concomitant]
     Active Substance: THIOPENTAL SODIUM
     Dosage: 250 MG
     Route: 042
  10. VECURONIUM [Concomitant]
     Active Substance: VECURONIUM BROMIDE
     Dosage: 8 MG
     Route: 042
  11. NITROUS OXIDE [Concomitant]
     Active Substance: NITROUS OXIDE

REACTIONS (5)
  - Ventricular tachycardia [Recovered/Resolved]
  - Drug interaction [Recovered/Resolved]
  - Blood pressure immeasurable [Recovered/Resolved]
  - Hypertension [Recovered/Resolved]
  - Electrocardiogram QT prolonged [Recovered/Resolved]
